FAERS Safety Report 20795631 (Version 1)
Quarter: 2022Q2

REPORT INFORMATION
  Report Type: Spontaneous
  Country: US (occurrence: US)
  Receive Date: 20220506
  Receipt Date: 20220506
  Transmission Date: 20220721
  Serious: No
  Sender: FDA-Public Use
  Company Number: US-PFIZER INC-2021240719

PATIENT
  Age: 5 Year
  Sex: Female

DRUGS (2)
  1. XELJANZ [Suspect]
     Active Substance: TOFACITINIB CITRATE
     Indication: Juvenile idiopathic arthritis
     Dosage: 5 MG (HALF OF TABLET IN THE MORNING AND A HALF OF TABLET IN THE EVENING)
  2. XELJANZ [Suspect]
     Active Substance: TOFACITINIB CITRATE
     Dosage: 3.2 MG, 2X/DAY
     Route: 048
     Dates: start: 20210314

REACTIONS (5)
  - Drug ineffective [Unknown]
  - Off label use [Unknown]
  - Wrong dosage form [Unknown]
  - Arthritis [Unknown]
  - Nasopharyngitis [Unknown]
